FAERS Safety Report 26065543 (Version 2)
Quarter: 2025Q4

REPORT INFORMATION
  Report Type: Spontaneous
  Country: GB (occurrence: GB)
  Receive Date: 20251119
  Receipt Date: 20251203
  Transmission Date: 20260118
  Serious: Yes (Death, Other)
  Sender: ASTELLAS
  Company Number: GB-ASTELLAS-2025-AER-064035

PATIENT
  Age: 6 Year
  Sex: Female
  Weight: 16 kg

DRUGS (4)
  1. XOSPATA [Suspect]
     Active Substance: GILTERITINIB
     Indication: Juvenile chronic myelomonocytic leukaemia
     Dosage: DISSOLVED IN WATER
     Route: 048
     Dates: start: 20251112, end: 20251112
  2. XOSPATA [Suspect]
     Active Substance: GILTERITINIB
     Indication: Leukaemia recurrent
  3. AZACITIDINE [Concomitant]
     Active Substance: AZACITIDINE
     Indication: Juvenile chronic myelomonocytic leukaemia
     Route: 065
     Dates: start: 20241015
  4. AZACITIDINE;VENETOCLAX [Concomitant]
     Indication: Juvenile chronic myelomonocytic leukaemia
     Dosage: PALLIATIVE CHEMOTHERAPY
     Route: 065
     Dates: start: 20251005

REACTIONS (4)
  - Malignant neoplasm progression [Fatal]
  - Off label use [Unknown]
  - Off label use [Unknown]
  - Wrong technique in product usage process [Unknown]

NARRATIVE: CASE EVENT DATE: 20251101
